FAERS Safety Report 12601107 (Version 2)
Quarter: 2016Q3

REPORT INFORMATION
  Report Type: Report from Study
  Country: US (occurrence: US)
  Receive Date: 20160728
  Receipt Date: 20160810
  Transmission Date: 20161109
  Serious: Yes (Other)
  Sender: FDA-Public Use
  Company Number: US-ABBVIE-16K-163-1681405-00

PATIENT
  Age: 26 Year
  Sex: Female

DRUGS (2)
  1. KANK-A [Suspect]
     Active Substance: BENZOCAINE
     Indication: ORAL HERPES
     Route: 065
     Dates: start: 20160713, end: 20160713
  2. HUMIRA [Suspect]
     Active Substance: ADALIMUMAB
     Indication: CROHN^S DISEASE
     Route: 058
     Dates: start: 201508

REACTIONS (4)
  - Pharyngeal oedema [Recovered/Resolved]
  - Oral herpes [Recovering/Resolving]
  - Hypersensitivity [Recovering/Resolving]
  - Lip swelling [Recovered/Resolved]

NARRATIVE: CASE EVENT DATE: 201607
